FAERS Safety Report 11785329 (Version 2)
Quarter: 2015Q4

REPORT INFORMATION
  Report Type: Spontaneous
  Country: CA (occurrence: CA)
  Receive Date: 20151130
  Receipt Date: 20151228
  Transmission Date: 20160305
  Serious: Yes (Other)
  Sender: FDA-Public Use
  Company Number: CA-BAYER-2015-470370

PATIENT
  Age: 43 Year
  Sex: Male

DRUGS (2)
  1. STIVARGA [Suspect]
     Active Substance: REGORAFENIB
     Indication: COLORECTAL CANCER METASTATIC
     Dosage: DAILY DOSE 120 MG
     Dates: start: 20151026, end: 2015
  2. STIVARGA [Suspect]
     Active Substance: REGORAFENIB
     Indication: COLORECTAL CANCER METASTATIC
     Dosage: 80 MG, QD
     Route: 048

REACTIONS (10)
  - Gait disturbance [None]
  - Weight decreased [None]
  - Erythema [Recovered/Resolved]
  - Decreased appetite [None]
  - Palmar-plantar erythrodysaesthesia syndrome [Recovered/Resolved]
  - Pain in extremity [Recovered/Resolved]
  - Heart rate increased [None]
  - Depressed mood [None]
  - Blood pressure increased [None]
  - Blister [Recovered/Resolved]
